FAERS Safety Report 5445829-6 (Version None)
Quarter: 2007Q3

REPORT INFORMATION
  Report Type: 
  Country: None (occurrence: None)
  Receive Date: 20070904
  Receipt Date: 20070815
  Transmission Date: 20080115
  Serious: Yes (Death, Other)
  Sender: FDA-Public Use
  Company Number: 2007RR-09425

PATIENT
  Age: 56 Year
  Sex: Male

DRUGS (2)
  1. GABAPENTIN [Suspect]
     Indication: NEURALGIA
     Dosage: SEE IMAGE
     Route: 048
  2. OXYCODONE HCL [Suspect]
     Indication: NEURALGIA
     Dosage: 100 MG, PRN, ORAL
     Route: 048

REACTIONS (4)
  - CONFUSIONAL STATE [None]
  - DRUG INTERACTION [None]
  - HALLUCINATION [None]
  - NEUROTOXICITY [None]
